FAERS Safety Report 25727839 (Version 1)
Quarter: 2025Q3

REPORT INFORMATION
  Report Type: Spontaneous
  Country: US (occurrence: None)
  Receive Date: 20250826
  Receipt Date: 20250826
  Transmission Date: 20251020
  Serious: Yes (Hospitalization)
  Sender: FDA-CTU
  Company Number: None

PATIENT
  Age: 75 Year
  Sex: Female
  Weight: 85.1 kg

DRUGS (2)
  1. PONATINIB [Suspect]
     Active Substance: PONATINIB
  2. VINCRISTINE SULFATE [Suspect]
     Active Substance: VINCRISTINE SULFATE

REACTIONS (5)
  - Enterocolitis infectious [None]
  - Dehydration [None]
  - Diverticulitis [None]
  - Colitis [None]
  - Clostridium difficile infection [None]

NARRATIVE: CASE EVENT DATE: 20250814
